FAERS Safety Report 10904129 (Version 1)
Quarter: 2015Q1

REPORT INFORMATION
  Report Type: Spontaneous
  Country: US (occurrence: None)
  Receive Date: 20150303
  Receipt Date: 20150303
  Transmission Date: 20150721
  Serious: Yes (Disabling)
  Sender: FDA-Public Use
  Company Number: None

PATIENT
  Age: 49 Year
  Sex: Female
  Weight: 72.58 kg

DRUGS (5)
  1. HYDROCODONE [Concomitant]
     Active Substance: HYDROCODONE
  2. SYNAREL [Suspect]
     Active Substance: NAFARELIN ACETATE
     Indication: ENDOMETRIOSIS
     Dosage: EVERY 12 HOURS; INTRANASALLY
     Dates: start: 19950901, end: 20011001
  3. CITRACAL [Concomitant]
     Active Substance: CALCIUM CITRATE
  4. PREMARIN [Concomitant]
     Active Substance: ESTROGENS, CONJUGATED
  5. ZOLOFT [Concomitant]
     Active Substance: SERTRALINE HYDROCHLORIDE

REACTIONS (3)
  - Arthralgia [None]
  - Osteoarthritis [None]
  - Musculoskeletal pain [None]

NARRATIVE: CASE EVENT DATE: 20150301
